FAERS Safety Report 11876210 (Version 1)
Quarter: 2015Q4

REPORT INFORMATION
  Report Type: Spontaneous
  Country: PL (occurrence: PL)
  Receive Date: 20151229
  Receipt Date: 20151229
  Transmission Date: 20160305
  Serious: Yes (Other)
  Sender: FDA-Public Use
  Company Number: PL-ROXANE LABORATORIES, INC.-2015-RO-02137RO

PATIENT
  Sex: Male

DRUGS (1)
  1. LITHIUM CARBONATE CAPSULES USP, 150 MG [Suspect]
     Active Substance: LITHIUM CARBONATE
     Indication: BIPOLAR DISORDER
     Route: 065

REACTIONS (1)
  - Hyperparathyroidism [Recovered/Resolved]
